FAERS Safety Report 6144781-8 (Version None)
Quarter: 2009Q2

REPORT INFORMATION
  Report Type: 
  Country: None (occurrence: None)
  Receive Date: 20090401
  Receipt Date: 20090401
  Transmission Date: 20091009
  Serious: No
  Sender: FDA-Public Use
  Company Number: None

PATIENT
  Sex: Male
  Weight: 96.36 kg

DRUGS (3)
  1. ZOCOR [Suspect]
     Dosage: 40 MG TABLET 40 MG QHS ORAL
     Route: 048
     Dates: start: 20080423, end: 20090331
  2. AMLODIPINE [Concomitant]
  3. PROTONIX [Concomitant]

REACTIONS (1)
  - MYALGIA [None]
